FAERS Safety Report 10350527 (Version 2)
Quarter: 2014Q3

REPORT INFORMATION
  Report Type: Spontaneous
  Country: US (occurrence: US)
  Receive Date: 20140730
  Receipt Date: 20140730
  Transmission Date: 20150326
  Serious: Yes (Hospitalization, Other)
  Sender: FDA-Public Use
  Company Number: PHEH2014US006642

PATIENT
  Sex: Male

DRUGS (7)
  1. FANAPT [Suspect]
     Active Substance: ILOPERIDONE
     Dosage: 10 MG, QD
     Dates: end: 20140619
  2. VITAMINS [Concomitant]
     Active Substance: VITAMINS
     Dosage: UNK UKN, UNK
  3. LORAZEPAM. [Concomitant]
     Active Substance: LORAZEPAM
     Dosage: UNK UKN, UNK
  4. FANAPT [Suspect]
     Active Substance: ILOPERIDONE
     Indication: SCHIZOPHRENIA
     Dosage: 10 MG, BID
     Route: 048
  5. DEPAKOTE [Concomitant]
     Active Substance: DIVALPROEX SODIUM
     Dosage: UNK UKN, UNK
  6. DEPAKOTE [Concomitant]
     Active Substance: DIVALPROEX SODIUM
     Dosage: UNK UKN, UNK
  7. SEROQUEL [Concomitant]
     Active Substance: QUETIAPINE FUMARATE
     Dosage: UNK UKN, UNK

REACTIONS (20)
  - Hallucination, auditory [Recovered/Resolved]
  - Stupor [Unknown]
  - Hyporeflexia [Unknown]
  - Lacrimation increased [Unknown]
  - Insomnia [Unknown]
  - Abnormal behaviour [Unknown]
  - Vision blurred [Unknown]
  - Headache [Unknown]
  - Chest pain [Unknown]
  - Depressed mood [Unknown]
  - Movement disorder [Unknown]
  - Anosognosia [Unknown]
  - Hypokinesia [Unknown]
  - Confusional state [Unknown]
  - Dry mouth [Unknown]
  - Speech disorder [Unknown]
  - Ocular hyperaemia [Unknown]
  - Amnesia [Unknown]
  - Catatonia [Unknown]
  - Salivary hypersecretion [Unknown]
